FAERS Safety Report 7734491-5 (Version None)
Quarter: 2011Q3

REPORT INFORMATION
  Report Type: 
  Country: None (occurrence: None)
  Receive Date: 20110907
  Receipt Date: 20110826
  Transmission Date: 20111222
  Serious: Yes (Hospitalization)
  Sender: FDA-Public Use
  Company Number: US-GLAXOSMITHKLINE-A0817040A

PATIENT
  Age: 65 Year
  Sex: Female
  Weight: 105.5 kg

DRUGS (7)
  1. AVANDAMET [Suspect]
     Indication: DIABETES MELLITUS
     Route: 048
     Dates: start: 20030521, end: 20080410
  2. METFORMIN HCL [Concomitant]
  3. ZOCOR [Concomitant]
  4. ALLOPURINOL [Concomitant]
  5. ALTACE [Concomitant]
  6. METOPROLOL [Concomitant]
  7. AVANDIA [Suspect]
     Indication: DIABETES MELLITUS
     Dosage: 4MG PER DAY
     Route: 048
     Dates: start: 20030521, end: 20080410

REACTIONS (4)
  - TRANSIENT ISCHAEMIC ATTACK [None]
  - MYOCARDIAL INFARCTION [None]
  - CORONARY ARTERY BYPASS [None]
  - ARTERIOSCLEROSIS [None]
